FAERS Safety Report 6601875-8 (Version None)
Quarter: 2010Q1

REPORT INFORMATION
  Report Type: 
  Country: None (occurrence: None)
  Receive Date: 20100218
  Receipt Date: 20100204
  Transmission Date: 20100710
  Serious: Yes (Hospitalization, Other)
  Sender: FDA-Public Use
  Company Number: 1-21469886

PATIENT
  Age: 77 Year
  Sex: Male

DRUGS (7)
  1. WARFARIN SODIUM [Suspect]
     Indication: THROMBOSIS PROPHYLAXIS
     Dosage: DAILY, ORAL
     Route: 048
     Dates: start: 20091012, end: 20091123
  2. METOPROLOL TARTRATE [Concomitant]
  3. ENALAPRIL 5 MG [Concomitant]
  4. FUROSEMIDE 40 [Concomitant]
  5. SPIRONOLACTONE [Concomitant]
  6. PENTOXIFYLLINE 300 MG [Concomitant]
  7. AMLODIPINE [Concomitant]

REACTIONS (3)
  - EMBOLIC STROKE [None]
  - ISCHAEMIC STROKE [None]
  - MALAISE [None]
